FAERS Safety Report 11285953 (Version 3)
Quarter: 2015Q4

REPORT INFORMATION
  Report Type: Report from Study
  Country: BR (occurrence: BR)
  Receive Date: 20150721
  Receipt Date: 20151211
  Transmission Date: 20160304
  Serious: Yes (Other)
  Sender: FDA-Public Use
  Company Number: BR-ROCHE-1217214

PATIENT
  Sex: Female
  Weight: 56.8 kg

DRUGS (7)
  1. TORSILAX [Concomitant]
     Active Substance: ACETAMINOPHEN\CAFFEINE\CARISOPRODOL\DICLOFENAC
     Indication: PAIN
     Route: 065
  2. METHOTREXATE [Concomitant]
     Active Substance: METHOTREXATE
     Indication: RHEUMATOID ARTHRITIS
     Route: 065
  3. PREDNISONE. [Concomitant]
     Active Substance: PREDNISONE
     Indication: RHEUMATOID ARTHRITIS
     Route: 065
  4. MABTHERA [Suspect]
     Active Substance: RITUXIMAB
     Indication: RHEUMATOID ARTHRITIS
     Route: 042
     Dates: start: 20121128
  5. TORSILAX [Concomitant]
     Active Substance: ACETAMINOPHEN\CAFFEINE\CARISOPRODOL\DICLOFENAC
     Indication: ARTHRALGIA
  6. SIMVASTATIN. [Concomitant]
     Active Substance: SIMVASTATIN
     Indication: HYPERCHOLESTEROLAEMIA
     Route: 048
  7. MABTHERA [Suspect]
     Active Substance: RITUXIMAB
     Dosage: LAST INFUSION ON 10/DEC/2014
     Route: 042
     Dates: start: 20121213

REACTIONS (15)
  - Dyspnoea [Not Recovered/Not Resolved]
  - Therapeutic response decreased [Unknown]
  - Cough [Unknown]
  - Weight decreased [Unknown]
  - Arthropathy [Unknown]
  - Pruritus [Recovered/Resolved]
  - Dyspnoea [Unknown]
  - Sensation of foreign body [Unknown]
  - Dizziness [Unknown]
  - Feeling abnormal [Unknown]
  - Decreased appetite [Not Recovered/Not Resolved]
  - Fatigue [Not Recovered/Not Resolved]
  - Swelling [Recovered/Resolved]
  - Increased viscosity of bronchial secretion [Unknown]
  - Hypersensitivity [Unknown]
